FAERS Safety Report 21424352 (Version 1)
Quarter: 2022Q4

REPORT INFORMATION
  Report Type: Spontaneous
  Country: CN (occurrence: CN)
  Receive Date: 20221007
  Receipt Date: 20221007
  Transmission Date: 20230113
  Serious: Yes (Life-Threatening, Hospitalization, Other)
  Sender: FDA-Public Use
  Company Number: CN-BAYER-2022A136613

PATIENT
  Age: 77 Year
  Sex: Male
  Weight: 66 kg

DRUGS (1)
  1. XARELTO [Suspect]
     Active Substance: RIVAROXABAN
     Indication: Anticoagulant therapy
     Dosage: 15 MG, QD
     Route: 048
     Dates: start: 20220920, end: 20220923

REACTIONS (6)
  - Cerebral haemorrhage [Unknown]
  - Subdural haemorrhage [Unknown]
  - Subdural effusion [Unknown]
  - Brain herniation [Unknown]
  - Somnolence [Unknown]
  - Speech disorder [Unknown]

NARRATIVE: CASE EVENT DATE: 20220923
